FAERS Safety Report 12638664 (Version 1)
Quarter: 2016Q3

REPORT INFORMATION
  Report Type: Report from Study
  Country: US (occurrence: US)
  Receive Date: 20160809
  Receipt Date: 20160809
  Transmission Date: 20161109
  Serious: No
  Sender: FDA-Public Use
  Company Number: US-009507513-1608USA004643

PATIENT

DRUGS (1)
  1. MEVACOR [Suspect]
     Active Substance: LOVASTATIN

REACTIONS (1)
  - Myalgia [Unknown]
